FAERS Safety Report 6793413-4 (Version None)
Quarter: 2010Q2

REPORT INFORMATION
  Report Type: 
  Country: None (occurrence: None)
  Receive Date: 20100624
  Receipt Date: 20100303
  Transmission Date: 20101027
  Serious: Yes (Other)
  Sender: FDA-Public Use
  Company Number: US-MYLANLABS-2010S1002765

PATIENT
  Age: 31 Year
  Sex: Male

DRUGS (10)
  1. CLOZAPINE [Suspect]
     Dates: start: 20091204, end: 20100122
  2. CLOZAPINE [Suspect]
     Dates: start: 20091204, end: 20100122
  3. COGENTIN [Concomitant]
  4. DEPAKOTE ER [Concomitant]
  5. PROLIXIN DECANOATE [Concomitant]
  6. PROLIXIN /00000602/ [Concomitant]
  7. ATIVAN [Concomitant]
  8. VITAMINS [Concomitant]
  9. MYLANTA [Concomitant]
  10. TYLENOL [Concomitant]

REACTIONS (1)
  - GRANULOCYTOPENIA [None]
